FAERS Safety Report 7297693-0 (Version None)
Quarter: 2011Q1

REPORT INFORMATION
  Report Type: 
  Country: None (occurrence: None)
  Receive Date: 20110216
  Receipt Date: 20110211
  Transmission Date: 20110831
  Serious: Yes (Other)
  Sender: FDA-Public Use
  Company Number: US-BRISTOL-MYERS SQUIBB COMPANY-14933618

PATIENT
  Age: 53 Year
  Sex: Female
  Weight: 68 kg

DRUGS (10)
  1. ASCORBIC ACID [Concomitant]
  2. MULTI-VITAMIN [Concomitant]
  3. LAXATIVES [Concomitant]
  4. SYNTHROID [Concomitant]
  5. KLONOPIN [Concomitant]
     Dosage: 1/2 TABLET
  6. LASIX [Concomitant]
     Route: 048
     Dates: start: 20100105
  7. ABILIFY [Suspect]
     Indication: BIPOLAR I DISORDER
     Dosage: 1 DF:5-10MG P.O. 5MG 1 TABLET DAILY ALTERNATING WITH 10MG 1 TABLET DAILY. RESUME 2006
     Route: 048
     Dates: start: 20050101
  8. ABILIFY [Suspect]
     Indication: BIPOLAR DISORDER
     Dosage: 1 DF:5-10MG P.O. 5MG 1 TABLET DAILY ALTERNATING WITH 10MG 1 TABLET DAILY. RESUME 2006
     Route: 048
     Dates: start: 20050101
  9. OMEPRAZOLE [Concomitant]
  10. LOVAZA [Concomitant]

REACTIONS (13)
  - HYPERTENSION [None]
  - RENAL FAILURE [None]
  - RESTLESSNESS [None]
  - NAUSEA [None]
  - WEIGHT INCREASED [None]
  - AMENORRHOEA [None]
  - DYSKINESIA [None]
  - MUSCLE TIGHTNESS [None]
  - TONGUE ULCERATION [None]
  - PARAESTHESIA [None]
  - BREAST ENGORGEMENT [None]
  - OEDEMA [None]
  - SOMNOLENCE [None]
